FAERS Safety Report 5706988-0 (Version None)
Quarter: 2008Q2

REPORT INFORMATION
  Report Type: 
  Country: None (occurrence: None)
  Receive Date: 20080416
  Receipt Date: 20080416
  Transmission Date: 20081010
  Serious: Yes (Other)
  Sender: FDA-Public Use
  Company Number: A0723130A

PATIENT
  Sex: Male

DRUGS (2)
  1. ALLI [Suspect]
     Dates: start: 20080102
  2. BLOOD PRESSURE MEDICATION [Concomitant]

REACTIONS (4)
  - CHEST PAIN [None]
  - DYSPNOEA [None]
  - THERAPEUTIC RESPONSE UNEXPECTED [None]
  - TYPE 2 DIABETES MELLITUS [None]
